FAERS Safety Report 15285978 (Version 4)
Quarter: 2019Q3

REPORT INFORMATION
  Report Type: Spontaneous
  Country: PT (occurrence: PT)
  Receive Date: 20180816
  Receipt Date: 20190904
  Transmission Date: 20191004
  Serious: Yes (Life-Threatening, Hospitalization, Other)
  Sender: FDA-Public Use
  Company Number: PT-TEVA-2018-PT-942020

PATIENT
  Age: 51 Year
  Sex: Female
  Weight: 72 kg

DRUGS (9)
  1. BITTER ORANGE EXTRACT\ETHYLMORPHINE HYDROCHLORIDE. [Interacting]
     Active Substance: BITTER ORANGE EXTRACT\ETHYLMORPHINE HYDROCHLORIDE
     Indication: WEIGHT DECREASED
     Dosage: 400 MILLIGRAM DAILY; EXTRATO DE LARANJA
     Route: 048
     Dates: start: 201706, end: 201807
  2. LEVOTHYROXINE SODIUM. [Concomitant]
     Active Substance: LEVOTHYROXINE SODIUM
     Indication: HYPOTHYROIDISM
     Route: 048
     Dates: start: 2014
  3. CHLORDIAZEPOXIDE. [Interacting]
     Active Substance: CHLORDIAZEPOXIDE
     Indication: WEIGHT DECREASED
     Dosage: 20 MILLIGRAM DAILY;
     Route: 048
     Dates: start: 201706, end: 201807
  4. CASCARA [Interacting]
     Active Substance: RHAMNUS PURSHIANA BARK EXTRACT
     Indication: WEIGHT DECREASED
     Dosage: 120 MILLIGRAM DAILY;
     Route: 048
     Dates: start: 201706, end: 201807
  5. METFORMIN [Interacting]
     Active Substance: METFORMIN HYDROCHLORIDE
     Indication: WEIGHT DECREASED
     Dosage: 460 MILLIGRAM DAILY;
     Route: 048
     Dates: start: 201706, end: 201807
  6. TRI-GYNERA [Interacting]
     Active Substance: ETHINYL ESTRADIOL\GESTODENE
     Indication: CONTRACEPTION
     Route: 048
     Dates: start: 2002, end: 201807
  7. BUPROPION. [Interacting]
     Active Substance: BUPROPION
     Indication: WEIGHT DECREASED
     Dosage: 240 MILLIGRAM DAILY;
     Route: 048
     Dates: start: 201706, end: 201807
  8. TOPIRAMATE. [Suspect]
     Active Substance: TOPIRAMATE
     Indication: WEIGHT DECREASED
     Dosage: 70 MILLIGRAM DAILY;
     Route: 048
     Dates: start: 201706, end: 201807
  9. FUROSEMIDE. [Suspect]
     Active Substance: FUROSEMIDE
     Indication: WEIGHT DECREASED
     Dosage: 60 MILLIGRAM DAILY;
     Route: 048
     Dates: start: 201706, end: 201807

REACTIONS (5)
  - Intentional product misuse [Unknown]
  - Headache [Recovering/Resolving]
  - Cerebral venous thrombosis [Recovering/Resolving]
  - Product use in unapproved indication [Unknown]
  - Drug interaction [Unknown]

NARRATIVE: CASE EVENT DATE: 20180619
